FAERS Safety Report 6533827-0 (Version None)
Quarter: 2010Q1

REPORT INFORMATION
  Report Type: 
  Country: None (occurrence: None)
  Receive Date: 20100111
  Receipt Date: 20081217
  Transmission Date: 20100710
  Serious: No
  Sender: FDA-Public Use
  Company Number: US-ABBOTT-08P-163-0493530-00

PATIENT
  Sex: Male

DRUGS (1)
  1. VICODIN [Suspect]
     Indication: HEADACHE
     Dosage: 1 - 7.5/500 MG TAB AS NEEDED
     Dates: start: 20080101, end: 20081101

REACTIONS (1)
  - CONSTIPATION [None]
